FAERS Safety Report 7031478-5 (Version None)
Quarter: 2010Q4

REPORT INFORMATION
  Report Type: 
  Country: None (occurrence: None)
  Receive Date: 20101006
  Receipt Date: 20100923
  Transmission Date: 20110411
  Serious: Yes (Life-Threatening, Hospitalization)
  Sender: FDA-Public Use
  Company Number: ES-GENENTECH-287708

PATIENT
  Sex: Female
  Weight: 68 kg

DRUGS (69)
  1. BLINDED BEVACIZUMAB [Suspect]
     Dosage: 1 UNK, Q14D
     Route: 042
     Dates: start: 20090709, end: 20090730
  2. CYCLOPHOSPHAMIDE [Suspect]
     Dosage: 1 UNK, Q14D
     Route: 042
     Dates: start: 20090709, end: 20090730
  3. DOXORUBICIN HCL [Suspect]
     Dosage: 1 UNK, Q14D
     Route: 042
     Dates: start: 20090709, end: 20090730
  4. BLINDED PLACEBO [Suspect]
     Dosage: 1 UNK, Q14D
     Route: 042
     Dates: start: 20090709, end: 20090730
  5. BLINDED PREDNISONE [Suspect]
     Dosage: 1 UNK, Q14D
     Route: 042
     Dates: start: 20090709, end: 20090730
  6. BLINDED RITUXIMAB [Suspect]
     Dosage: 1 UNK, Q14D
     Route: 042
     Dates: start: 20090709, end: 20090730
  7. VINCRISTINE [Suspect]
     Dosage: 1 UNK, Q14D
     Route: 042
     Dates: start: 20090709, end: 20090730
  8. BLINDED BEVACIZUMAB [Suspect]
     Dosage: UNK
     Route: 042
  9. CYCLOPHOSPHAMIDE [Suspect]
     Dosage: UNK
     Route: 042
  10. DOXORUBICIN HCL [Suspect]
     Dosage: UNK
     Route: 042
  11. BLINDED PLACEBO [Suspect]
     Dosage: UNK
     Route: 042
  12. BLINDED PREDNISONE [Suspect]
     Dosage: UNK
     Route: 042
  13. BLINDED RITUXIMAB [Suspect]
     Dosage: UNK
     Route: 042
  14. VINCRISTINE [Suspect]
     Dosage: UNK
     Route: 042
  15. BLINDED BEVACIZUMAB [Suspect]
     Dosage: UNK
     Route: 042
  16. CYCLOPHOSPHAMIDE [Suspect]
     Dosage: UNK
     Route: 042
  17. DOXORUBICIN HCL [Suspect]
     Dosage: UNK
     Route: 042
  18. BLINDED PLACEBO [Suspect]
     Dosage: UNK
     Route: 042
  19. BLINDED PREDNISONE [Suspect]
     Dosage: UNK
     Route: 042
  20. BLINDED RITUXIMAB [Suspect]
     Dosage: UNK
     Route: 042
  21. VINCRISTINE [Suspect]
     Dosage: UNK
     Route: 042
  22. BLINDED BEVACIZUMAB [Suspect]
     Dosage: UNK
     Route: 042
     Dates: end: 20091127
  23. CYCLOPHOSPHAMIDE [Suspect]
     Dosage: UNK
     Route: 042
     Dates: end: 20091127
  24. DOXORUBICIN HCL [Suspect]
     Dosage: UNK
     Route: 042
     Dates: end: 20091127
  25. BLINDED PLACEBO [Suspect]
     Dosage: UNK
     Route: 042
     Dates: end: 20091127
  26. BLINDED PREDNISONE [Suspect]
     Dosage: UNK
     Route: 042
     Dates: end: 20091127
  27. BLINDED RITUXIMAB [Suspect]
     Dosage: UNK
     Route: 042
     Dates: end: 20091127
  28. VINCRISTINE [Suspect]
     Dosage: UNK
     Route: 042
     Dates: end: 20091127
  29. BLINDED BEVACIZUMAB [Suspect]
     Dosage: UNK
     Route: 042
     Dates: start: 20091204, end: 20091217
  30. CYCLOPHOSPHAMIDE [Suspect]
     Dosage: UNK
     Route: 042
     Dates: start: 20091204, end: 20091217
  31. DOXORUBICIN HCL [Suspect]
     Dosage: UNK
     Route: 042
     Dates: start: 20091204, end: 20091217
  32. BLINDED PLACEBO [Suspect]
     Dosage: UNK
     Route: 042
     Dates: start: 20091204, end: 20091217
  33. BLINDED PREDNISONE [Suspect]
     Dosage: UNK
     Route: 042
     Dates: start: 20091204, end: 20091217
  34. BLINDED RITUXIMAB [Suspect]
     Dosage: UNK
     Route: 042
     Dates: start: 20091204, end: 20091217
  35. VINCRISTINE [Suspect]
     Dosage: UNK
     Route: 042
     Dates: start: 20091204, end: 20091217
  36. BLINDED BEVACIZUMAB [Suspect]
     Dosage: UNK
     Route: 042
     Dates: start: 20091228
  37. CYCLOPHOSPHAMIDE [Suspect]
     Dosage: UNK
     Route: 042
     Dates: start: 20091228
  38. DOXORUBICIN HCL [Suspect]
     Dosage: UNK
     Route: 042
     Dates: start: 20091228
  39. BLINDED PLACEBO [Suspect]
     Dosage: UNK
     Route: 042
     Dates: start: 20091228
  40. BLINDED PREDNISONE [Suspect]
     Dosage: UNK
     Route: 042
     Dates: start: 20091228
  41. BLINDED RITUXIMAB [Suspect]
     Dosage: UNK
     Route: 042
     Dates: start: 20091228
  42. VINCRISTINE [Suspect]
     Dosage: UNK
     Route: 042
     Dates: start: 20091228
  43. BLINDED BEVACIZUMAB [Suspect]
     Dosage: UNK
     Route: 042
     Dates: start: 20100312
  44. CYCLOPHOSPHAMIDE [Suspect]
     Dosage: UNK
     Route: 042
     Dates: start: 20100312
  45. DOXORUBICIN HCL [Suspect]
     Dosage: UNK
     Route: 042
     Dates: start: 20100312
  46. BLINDED PLACEBO [Suspect]
     Dosage: UNK
     Route: 042
     Dates: start: 20100312
  47. BLINDED PREDNISONE [Suspect]
     Dosage: UNK
     Route: 042
     Dates: start: 20100312
  48. BLINDED RITUXIMAB [Suspect]
     Dosage: UNK
     Route: 042
     Dates: start: 20100312
  49. VINCRISTINE [Suspect]
     Dosage: UNK
     Route: 042
     Dates: start: 20100312
  50. RITUXAN [Suspect]
     Indication: DIFFUSE LARGE B-CELL LYMPHOMA
     Dosage: 600 MG, Q14D
     Route: 042
     Dates: start: 20090710, end: 20090730
  51. RITUXAN [Suspect]
     Dosage: 600 MG, Q14D
     Route: 042
  52. RITUXAN [Suspect]
     Dosage: 600 MG, Q14D
     Route: 042
  53. CYCLOPHOSPHAMIDE [Suspect]
     Indication: DIFFUSE LARGE B-CELL LYMPHOMA
     Dosage: 1200 MG, Q14D
     Route: 042
     Dates: start: 20090710, end: 20090730
  54. CYCLOPHOSPHAMIDE [Suspect]
     Route: 042
  55. CYCLOPHOSPHAMIDE [Suspect]
     Dosage: 1200 MG, Q14D
     Route: 042
  56. DOXORUBICIN HCL [Suspect]
     Indication: DIFFUSE LARGE B-CELL LYMPHOMA
     Dosage: 80 MG, Q14D
     Route: 042
     Dates: start: 20090710, end: 20090730
  57. DOXORUBICIN HCL [Suspect]
     Dosage: 80 MG, Q14D
     Route: 042
  58. DOXORUBICIN HCL [Suspect]
     Dosage: 80 MG, Q14D
     Route: 042
  59. PREDNISONE [Suspect]
     Indication: DIFFUSE LARGE B-CELL LYMPHOMA
     Dosage: 500 MG, Q14D
     Route: 048
     Dates: start: 20090710, end: 20090730
  60. PREDNISONE [Suspect]
     Dosage: 500 MG, Q14D
     Route: 048
  61. PREDNISONE [Suspect]
     Dosage: 500 MG, Q14D
     Route: 048
  62. VINCRISTINE [Suspect]
     Indication: DIFFUSE LARGE B-CELL LYMPHOMA
     Dosage: 2 MG, Q14D
     Route: 042
     Dates: start: 20090710, end: 20090730
  63. VINCRISTINE [Suspect]
     Dosage: 2 MG, Q14D
     Route: 042
  64. VINCRISTINE [Suspect]
     Dosage: 2 MG, Q14D
     Route: 042
  65. PANTOPRAZOLE [Concomitant]
     Indication: PRODUCT USED FOR UNKNOWN INDICATION
  66. ASPIRIN [Concomitant]
     Indication: PRODUCT USED FOR UNKNOWN INDICATION
  67. ALLOPURINOL [Concomitant]
     Indication: PRODUCT USED FOR UNKNOWN INDICATION
  68. LORAZEPAM [Concomitant]
     Indication: PRODUCT USED FOR UNKNOWN INDICATION
  69. SULFAMETHOXAZOLE AND TRIMETHOPRIM [Concomitant]
     Indication: PRODUCT USED FOR UNKNOWN INDICATION

REACTIONS (3)
  - FEBRILE NEUTROPENIA [None]
  - LOWER LIMB FRACTURE [None]
  - NEUTROPENIA [None]
